FAERS Safety Report 7073846-1 (Version None)
Quarter: 2010Q4

REPORT INFORMATION
  Report Type: 
  Country: None (occurrence: None)
  Receive Date: 20101029
  Receipt Date: 20101004
  Transmission Date: 20110411
  Serious: No
  Sender: FDA-Public Use
  Company Number: A0877466A

PATIENT
  Age: 42 Year
  Sex: Female
  Weight: 136.4 kg

DRUGS (10)
  1. ADVAIR DISKUS 100/50 [Suspect]
     Indication: CHRONIC OBSTRUCTIVE PULMONARY DISEASE
     Dosage: 1PUFF TWICE PER DAY
     Route: 055
     Dates: end: 20100601
  2. ALBUTEROL [Concomitant]
  3. VENLAFAXINE [Concomitant]
  4. TEGRETOL [Concomitant]
  5. PROPRANOLOL [Concomitant]
  6. THORAZINE [Concomitant]
  7. LYRICA [Concomitant]
  8. COMBIVENT [Concomitant]
  9. HYDROCODONE [Concomitant]
  10. IPRATROPIUM BROMIDE [Concomitant]

REACTIONS (5)
  - CHEST DISCOMFORT [None]
  - COUGH [None]
  - DRUG INEFFECTIVE [None]
  - DRY MOUTH [None]
  - DYSGEUSIA [None]
